FAERS Safety Report 11204267 (Version 1)
Quarter: 2015Q2

REPORT INFORMATION
  Report Type: Spontaneous
  Country: CA (occurrence: CA)
  Receive Date: 20150620
  Receipt Date: 20150620
  Transmission Date: 20150821
  Serious: Yes (Life-Threatening, Hospitalization, Other)
  Sender: FDA-Public Use
  Company Number: CA-TEVA-571346USA

PATIENT
  Age: 58 Year
  Sex: Male
  Weight: 101 kg

DRUGS (5)
  1. HYDROXYZINE [Concomitant]
     Active Substance: HYDROXYZINE\HYDROXYZINE HYDROCHLORIDE
     Dosage: 100 MILLIGRAM DAILY; PRN
     Route: 048
     Dates: start: 20150501
  2. GLAXAL BASE [Concomitant]
     Dosage: PRN
  3. CEFADROXIL. [Suspect]
     Active Substance: CEFADROXIL
     Indication: PRODUCT USED FOR UNKNOWN INDICATION
     Dosage: 1000 MILLIGRAM DAILY;
     Route: 048
     Dates: start: 20150417, end: 20150430
  4. CLARITHROMYCIN (SANDOZ) [Suspect]
     Active Substance: CLARITHROMYCIN
     Indication: PRODUCT USED FOR UNKNOWN INDICATION
     Dosage: 1000 MILLIGRAM DAILY;
     Route: 048
     Dates: start: 20150504, end: 20150512
  5. TYLENOL OTC [Concomitant]

REACTIONS (5)
  - Chronic lymphocytic leukaemia [Unknown]
  - Pain [Unknown]
  - Dermatitis exfoliative [Unknown]
  - Toxic epidermal necrolysis [Recovering/Resolving]
  - Acute lymphocytic leukaemia [Unknown]

NARRATIVE: CASE EVENT DATE: 20150512
